FAERS Safety Report 21555498 (Version 1)
Quarter: 2022Q4

REPORT INFORMATION
  Report Type: Report from Study
  Country: US (occurrence: US)
  Receive Date: 20221104
  Receipt Date: 20221104
  Transmission Date: 20230112
  Serious: No
  Sender: FDA-Public Use
  Company Number: US-ABBVIE-4152729

PATIENT

DRUGS (4)
  1. HUMIRA [Suspect]
     Active Substance: ADALIMUMAB
     Indication: Psoriatic arthropathy
     Dosage: CITRATE FREE, FORM STRENGTH: 40 MG
     Route: 058
  2. Pfizer/BioNtech  covid-19 vaccine [Concomitant]
     Indication: COVID-19 immunisation
     Dosage: 1ST DOSE, FREQUENCY: ONE IN ONCE
     Route: 030
     Dates: start: 20210315, end: 20210315
  3. Pfizer/BioNtech  covid-19 vaccine [Concomitant]
     Indication: COVID-19 immunisation
     Dosage: 2ND DOSE, FREQUENCY: ONE IN ONCE
     Route: 030
     Dates: start: 20210423, end: 20210423
  4. Pfizer/BioNtech  covid-19 vaccine [Concomitant]
     Indication: COVID-19 immunisation
     Dosage: 3RD DOSE, FREQUENCY: ONE IN ONCE
     Route: 030
     Dates: start: 20211212, end: 20211212

REACTIONS (2)
  - Herpes zoster [Unknown]
  - COVID-19 [Unknown]
